FAERS Safety Report 16404281 (Version 2)
Quarter: 2019Q2

REPORT INFORMATION
  Report Type: Spontaneous
  Country: US (occurrence: US)
  Receive Date: 20190607
  Receipt Date: 20190610
  Transmission Date: 20190711
  Serious: No
  Sender: FDA-Public Use
  Company Number: US-PFIZER INC-2019209695

PATIENT
  Age: 80 Year
  Sex: Female

DRUGS (1)
  1. PREMARIN [Suspect]
     Active Substance: ESTROGENS, CONJUGATED
     Dosage: 2 G, UNK(APPLY 2 GRAM BY TOPICAL ROUTE 3 X PER WEEK)
     Route: 061

REACTIONS (5)
  - Off label use [Unknown]
  - Insomnia [Unknown]
  - Product use issue [Unknown]
  - Hot flush [Unknown]
  - Feeling abnormal [Unknown]
